FAERS Safety Report 7004213-4 (Version None)
Quarter: 2010Q3

REPORT INFORMATION
  Report Type: 
  Country: None (occurrence: None)
  Receive Date: 20100920
  Receipt Date: 20100211
  Transmission Date: 20110219
  Serious: No
  Sender: FDA-Public Use
  Company Number: US-WYE-H13620610

PATIENT
  Age: 86 Year
  Sex: Male

DRUGS (6)
  1. PRISTIQ [Suspect]
     Route: 048
     Dates: start: 20100209, end: 20100210
  2. FLOMAX [Concomitant]
  3. PROPRANOLOL [Concomitant]
  4. LOVASTATIN [Concomitant]
  5. AVANDIA [Concomitant]
  6. ASPIRIN [Concomitant]

REACTIONS (6)
  - CONSTIPATION [None]
  - DIZZINESS [None]
  - HYPERHIDROSIS [None]
  - INSOMNIA [None]
  - NERVOUSNESS [None]
  - TREMOR [None]
